FAERS Safety Report 23788253 (Version 1)
Quarter: 2024Q2

REPORT INFORMATION
  Report Type: Spontaneous
  Country: GB (occurrence: GB)
  Receive Date: 20240426
  Receipt Date: 20240426
  Transmission Date: 20240715
  Serious: Yes (Other)
  Sender: FDA-Public Use
  Company Number: None

PATIENT
  Age: 58 Year
  Sex: Female

DRUGS (3)
  1. NAPROXEN [Suspect]
     Active Substance: NAPROXEN
     Indication: Analgesic therapy
     Dosage: AT BEDTIME; ;
  2. CITALOPRAM [Concomitant]
     Active Substance: CITALOPRAM\CITALOPRAM HYDROBROMIDE
     Indication: Depression
  3. SYMBICORT [Concomitant]
     Active Substance: BUDESONIDE\FORMOTEROL FUMARATE DIHYDRATE
     Indication: Asthma

REACTIONS (5)
  - Periorbital swelling [Recovered/Resolved]
  - Eye swelling [Recovered/Resolved]
  - Eye irritation [Recovered/Resolved]
  - Discomfort [Recovered/Resolved]
  - Visual impairment [Recovered/Resolved]
